FAERS Safety Report 25431848 (Version 1)
Quarter: 2025Q2

REPORT INFORMATION
  Report Type: Spontaneous
  Country: US (occurrence: US)
  Receive Date: 20250613
  Receipt Date: 20250613
  Transmission Date: 20250717
  Serious: Yes (Hospitalization, Other)
  Sender: OXFORD PHARMACEUTICALS, LLC
  Company Number: US-Oxford Pharmaceuticals, LLC-2178593

PATIENT
  Age: 38 Year
  Sex: Male

DRUGS (3)
  1. AMLODIPINE BESYLATE [Suspect]
     Active Substance: AMLODIPINE BESYLATE
     Indication: Product used for unknown indication
  2. FLUOXETINE [Suspect]
     Active Substance: FLUOXETINE HYDROCHLORIDE
  3. QUETIAPINE [Suspect]
     Active Substance: QUETIAPINE

REACTIONS (4)
  - Shock [Recovering/Resolving]
  - Intentional overdose [Unknown]
  - Tachycardia [Recovering/Resolving]
  - Suicide attempt [Unknown]
